FAERS Safety Report 17755487 (Version 1)
Quarter: 2020Q2

REPORT INFORMATION
  Report Type: Spontaneous
  Country: US (occurrence: US)
  Receive Date: 20200506
  Receipt Date: 20200506
  Transmission Date: 20200714
  Serious: No
  Sender: FDA-Public Use
  Company Number: None

PATIENT
  Sex: Female

DRUGS (7)
  1. STELARA [Suspect]
     Active Substance: USTEKINUMAB
     Indication: CROHN^S DISEASE
     Dosage: ?          OTHER FREQUENCY:Q8WKS;?
     Route: 058
     Dates: start: 20170804
  2. LORAZEPAM. [Concomitant]
     Active Substance: LORAZEPAM
  3. GABAPENTIN. [Suspect]
     Active Substance: GABAPENTIN
  4. SERTRALINE [Concomitant]
     Active Substance: SERTRALINE HYDROCHLORIDE
  5. PREDNISOLONE. [Concomitant]
     Active Substance: PREDNISOLONE
  6. CYANOCOBALAM [Concomitant]
     Active Substance: CYANOCOBALAMIN
  7. NICROGESTIN [Concomitant]

REACTIONS (2)
  - Impaired quality of life [None]
  - Crohn^s disease [None]
